FAERS Safety Report 7509266-2 (Version None)
Quarter: 2011Q2

REPORT INFORMATION
  Report Type: 
  Country: None (occurrence: None)
  Receive Date: 20110527
  Receipt Date: 20110518
  Transmission Date: 20111010
  Serious: Yes (Other)
  Sender: FDA-Public Use
  Company Number: FR-ROCHE-769427

PATIENT
  Sex: Female
  Weight: 75 kg

DRUGS (1)
  1. MIRCERA [Suspect]
     Route: 042
     Dates: start: 20101115

REACTIONS (3)
  - NO ADVERSE EVENT [None]
  - DEVICE CONNECTION ISSUE [None]
  - ACCIDENTAL EXPOSURE [None]
